FAERS Safety Report 6167053-4 (Version None)
Quarter: 2009Q2

REPORT INFORMATION
  Report Type: 
  Country: None (occurrence: None)
  Receive Date: 20090423
  Receipt Date: 20090423
  Transmission Date: 20091009
  Serious: Yes (Hospitalization)
  Sender: FDA-Public Use
  Company Number: None

PATIENT
  Age: 83 Year
  Sex: Male

DRUGS (7)
  1. CARVEDILOL [Suspect]
     Indication: HYPERTENSION
     Dosage: 6.25 MG DAILY PO
     Route: 048
  2. IMDUR [Suspect]
     Indication: ANGINA PECTORIS
     Dosage: 30 MG DAILY PO
     Route: 048
  3. FOLIC ACID [Concomitant]
  4. RAMIPRIL [Concomitant]
  5. ARICEPT [Concomitant]
  6. VITAMIN D [Concomitant]
  7. CADUET [Concomitant]

REACTIONS (2)
  - BRADYCARDIA [None]
  - SYNCOPE [None]
